FAERS Safety Report 6146459-3 (Version None)
Quarter: 2009Q2

REPORT INFORMATION
  Report Type: 
  Country: None (occurrence: None)
  Receive Date: 20090407
  Receipt Date: 20090331
  Transmission Date: 20091009
  Serious: Yes (Death)
  Sender: FDA-Public Use
  Company Number: A0776186A

PATIENT
  Age: 73 Year
  Sex: Male

DRUGS (2)
  1. ARIXTRA [Suspect]
     Indication: DRUG USE FOR UNKNOWN INDICATION
     Route: 058
  2. ARGATROBAN [Concomitant]

REACTIONS (3)
  - HAEMOLYSIS [None]
  - PLATELET COUNT DECREASED [None]
  - RENAL FAILURE [None]
